FAERS Safety Report 6447120-8 (Version None)
Quarter: 2009Q4

REPORT INFORMATION
  Report Type: 
  Country: None (occurrence: None)
  Receive Date: 20091119
  Receipt Date: 20091109
  Transmission Date: 20100525
  Serious: Yes (Other)
  Sender: FDA-Public Use
  Company Number: GB-PFIZER INC-2009294810

PATIENT
  Age: 35 Year
  Sex: Male

DRUGS (1)
  1. CHAMPIX [Suspect]
     Dosage: 0.5 MG, 2X/DAY

REACTIONS (2)
  - LOWER RESPIRATORY TRACT INFECTION [None]
  - MALAISE [None]
